FAERS Safety Report 6017395-8 (Version None)
Quarter: 2008Q4

REPORT INFORMATION
  Report Type: 
  Country: None (occurrence: None)
  Receive Date: 20081223
  Receipt Date: 20081212
  Transmission Date: 20090506
  Serious: Yes (Other)
  Sender: FDA-Public Use
  Company Number: PHHY2008GB32220

PATIENT

DRUGS (1)
  1. TRILEPTAL [Suspect]
     Dosage: 300 MG TABLET, 150 MG TABLET BD

REACTIONS (1)
  - CONVULSION [None]
